FAERS Safety Report 20467170 (Version 1)
Quarter: 2022Q1

REPORT INFORMATION
  Report Type: Spontaneous
  Country: VN (occurrence: VN)
  Receive Date: 20220214
  Receipt Date: 20220214
  Transmission Date: 20220423
  Serious: Yes (Hospitalization)
  Sender: FDA-Public Use
  Company Number: VN-SUN PHARMACEUTICAL INDUSTRIES LTD-2021R1-324202

PATIENT
  Age: 56 Year
  Sex: Male

DRUGS (1)
  1. CAPECITABINE [Suspect]
     Active Substance: CAPECITABINE
     Indication: Product used for unknown indication
     Dosage: 500 MILLIGRAM, UNK
     Route: 065

REACTIONS (5)
  - Fatigue [Recovering/Resolving]
  - Nausea [Recovering/Resolving]
  - Abdominal pain [Recovering/Resolving]
  - Faeces soft [Recovering/Resolving]
  - Abdominal fat apron [Recovering/Resolving]

NARRATIVE: CASE EVENT DATE: 20190222
